FAERS Safety Report 5528970-9 (Version None)
Quarter: 2007Q4

REPORT INFORMATION
  Report Type: 
  Country: None (occurrence: None)
  Receive Date: 20071109
  Receipt Date: 20070601
  Transmission Date: 20080405
  Serious: Yes (Other)
  Sender: FDA-Public Use
  Company Number: PHEH2005US03746

PATIENT
  Age: 60 Year
  Sex: Female
  Weight: 83.9 kg

DRUGS (14)
  1. ESTRADERM [Suspect]
     Indication: HORMONE REPLACEMENT THERAPY
     Dosage: TRANSDERMAL
     Route: 062
     Dates: start: 19970101, end: 19980101
  2. PREMPRO [Suspect]
     Indication: MENOPAUSE
     Dates: start: 19980101, end: 19990101
  3. PROVERA [Suspect]
     Indication: MENOPAUSE
     Dates: start: 19960101, end: 19980101
  4. CYCRIN [Suspect]
  5. MEDROXYPROGESTERONE ACETATE [Suspect]
     Dates: start: 19970101, end: 19980101
  6. ELAVIL [Concomitant]
  7. AMITRIPTYLINE HCL [Concomitant]
  8. ASACOL [Concomitant]
  9. HYOSCYAMINE (HYOSCYAMINE) [Concomitant]
  10. HYDROCHLOROTHIAZIDE [Concomitant]
  11. ATENOLOL [Concomitant]
  12. FOSAMAX [Concomitant]
  13. NULEV (HYOSCYAMINE SULFATE) [Concomitant]
  14. EFFEXOR [Concomitant]

REACTIONS (12)
  - AMYLOIDOSIS [None]
  - BREAST CANCER IN SITU [None]
  - BREAST HYPERPLASIA [None]
  - BREAST MICROCALCIFICATION [None]
  - FIBROCYSTIC BREAST DISEASE [None]
  - HYPERTENSION [None]
  - MASTECTOMY [None]
  - OEDEMA PERIPHERAL [None]
  - OSTEOARTHRITIS [None]
  - OSTEOPOROSIS [None]
  - PAIN IN EXTREMITY [None]
  - PLASMACYTOSIS [None]
